FAERS Safety Report 10740926 (Version 1)
Quarter: 2015Q1

REPORT INFORMATION
  Report Type: Spontaneous
  Country: US (occurrence: None)
  Receive Date: 20150123
  Receipt Date: 20150123
  Transmission Date: 20150721
  Serious: Yes (Hospitalization, Other)
  Sender: FDA-Public Use
  Company Number: None

PATIENT
  Age: 96 Year
  Sex: Male
  Weight: 86.9 kg

DRUGS (1)
  1. SIMVASTATIN. [Suspect]
     Active Substance: SIMVASTATIN
     Route: 048
     Dates: start: 20081031, end: 20150107

REACTIONS (7)
  - Rhabdomyolysis [None]
  - Hypotension [None]
  - Tachycardia [None]
  - Oedema peripheral [None]
  - Fall [None]
  - Contusion [None]
  - Acute myocardial infarction [None]

NARRATIVE: CASE EVENT DATE: 20150107
